FAERS Safety Report 12691486 (Version 1)
Quarter: 2016Q3

REPORT INFORMATION
  Report Type: Spontaneous
  Country: MY (occurrence: MY)
  Receive Date: 20160826
  Receipt Date: 20160826
  Transmission Date: 20161109
  Serious: Yes (Other)
  Sender: FDA-Public Use
  Company Number: MY-MYLANLABS-2016M1036098

PATIENT

DRUGS (4)
  1. DOXORUBICIN [Suspect]
     Active Substance: DOXORUBICIN
     Indication: ENTEROPATHY-ASSOCIATED T-CELL LYMPHOMA
     Route: 065
  2. ONCOVIN [Suspect]
     Active Substance: VINCRISTINE SULFATE
     Indication: ENTEROPATHY-ASSOCIATED T-CELL LYMPHOMA
     Route: 065
  3. PREDNISOLONE. [Suspect]
     Active Substance: PREDNISOLONE
     Indication: ENTEROPATHY-ASSOCIATED T-CELL LYMPHOMA
     Route: 065
  4. CYCLOPHOSPHAMIDE. [Suspect]
     Active Substance: CYCLOPHOSPHAMIDE
     Indication: ENTEROPATHY-ASSOCIATED T-CELL LYMPHOMA
     Route: 065

REACTIONS (1)
  - Febrile neutropenia [Unknown]
